FAERS Safety Report 13637985 (Version 1)
Quarter: 2017Q2

REPORT INFORMATION
  Report Type: Spontaneous
  Country: CN (occurrence: CN)
  Receive Date: 20170609
  Receipt Date: 20170609
  Transmission Date: 20170830
  Serious: Yes (Other)
  Sender: FDA-Public Use
  Company Number: PHHY2017CN081859

PATIENT
  Age: 23 Year
  Sex: Male
  Weight: 56 kg

DRUGS (9)
  1. CICLOSPORIN [Interacting]
     Active Substance: CYCLOSPORINE
     Indication: RENAL TRANSPLANT
     Dosage: 100 MG, BID
     Route: 065
  2. MYCOPHENOLATE [Interacting]
     Active Substance: MYCOPHENOLIC ACID
     Indication: RENAL TRANSPLANT
     Dosage: 540 MG, BID
     Route: 065
  3. METHYLPREDNISOLONE SANDOZ [Interacting]
     Active Substance: METHYLPREDNISOLONE
     Indication: IMMUNOSUPPRESSANT DRUG THERAPY
  4. CICLOSPORIN [Interacting]
     Active Substance: CYCLOSPORINE
     Indication: IMMUNOSUPPRESSANT DRUG THERAPY
  5. MYCOPHENOLATE [Interacting]
     Active Substance: MYCOPHENOLIC ACID
     Indication: IMMUNOSUPPRESSANT DRUG THERAPY
  6. CEFUROXIME SODIUM. [Interacting]
     Active Substance: CEFUROXIME SODIUM
     Indication: INFECTION PROPHYLAXIS
     Dosage: 1.5 G, BID
     Route: 065
  7. CEFUROXIME SODIUM. [Interacting]
     Active Substance: CEFUROXIME SODIUM
     Dosage: 0.75 MG, BID
     Route: 065
  8. SODIUM NITROPRUSSIDE. [Suspect]
     Active Substance: SODIUM NITROPRUSSIDE
     Indication: PRODUCT USED FOR UNKNOWN INDICATION
     Dosage: 50 MG, UNK
     Route: 065
  9. METHYLPREDNISOLONE SANDOZ [Suspect]
     Active Substance: METHYLPREDNISOLONE
     Indication: RENAL TRANSPLANT
     Dosage: 500 MG, UNK
     Route: 065

REACTIONS (8)
  - Urine output decreased [Unknown]
  - Delayed graft function [Unknown]
  - Mental disorder [Unknown]
  - Creatinine renal clearance increased [Unknown]
  - Irritability [Unknown]
  - Procedural hypertension [Unknown]
  - Insomnia [Unknown]
  - Drug interaction [Unknown]
